FAERS Safety Report 4286786-8 (Version None)
Quarter: 2004Q1

REPORT INFORMATION
  Report Type: 
  Country: None (occurrence: None)
  Receive Date: 20040204
  Receipt Date: 20040126
  Transmission Date: 20041129
  Serious: Yes (Other)
  Sender: FDA-Public Use
  Company Number: 2004005466

PATIENT
  Sex: Male
  Weight: 68.9467 kg

DRUGS (4)
  1. DILANTIN KAPSEAL [Suspect]
     Indication: EPILEPSY
     Dosage: ORAL
     Route: 048
  2. NEURONTIN [Suspect]
     Indication: EPILEPSY
     Dosage: 600 MG (BID), ORAL
     Route: 048
  3. PHENYTOIN [Suspect]
     Indication: EPILEPSY
     Dates: start: 20030101
  4. PHENOBARBITAL TAB [Concomitant]

REACTIONS (6)
  - ANXIETY [None]
  - ASTHENIA [None]
  - CHEST PAIN [None]
  - FATIGUE [None]
  - INSOMNIA [None]
  - VITAMIN B COMPLEX DEFICIENCY [None]
